FAERS Safety Report 24391438 (Version 1)
Quarter: 2024Q4

REPORT INFORMATION
  Report Type: Spontaneous
  Country: US (occurrence: US)
  Receive Date: 20241003
  Receipt Date: 20241003
  Transmission Date: 20250114
  Serious: Yes (Other)
  Sender: CIPLA
  Company Number: US-CIPLA LTD.-2024US10787

PATIENT

DRUGS (3)
  1. SERTRALINE [Suspect]
     Active Substance: SERTRALINE HYDROCHLORIDE
     Indication: Depression
     Dosage: UNK
     Route: 065
  2. RIBOFLAVIN [RIBOFLAVIN SODIUM PHOSPHATE] [Concomitant]
     Indication: Carnitine deficiency
     Dosage: UNK
     Route: 065
  3. CARNITINE [Concomitant]
     Active Substance: CARNITINE
     Indication: Carnitine deficiency
     Dosage: UNK
     Route: 065

REACTIONS (1)
  - Multiple acyl-coenzyme A dehydrogenase deficiency [Recovered/Resolved]
